FAERS Safety Report 20884176 (Version 1)
Quarter: 2022Q2

REPORT INFORMATION
  Report Type: Spontaneous
  Country: CO (occurrence: CO)
  Receive Date: 20220527
  Receipt Date: 20220527
  Transmission Date: 20220721
  Serious: Yes (Other)
  Sender: FDA-Public Use
  Company Number: CO-BAYER-2022P003203

PATIENT
  Age: 17 Year
  Sex: Female

DRUGS (1)
  1. ULTRAVIST [Suspect]
     Active Substance: IOPROMIDE
     Indication: Abdominal injury
     Dosage: UNK
     Route: 042
     Dates: start: 20220511, end: 20220511

REACTIONS (5)
  - Renal failure [None]
  - Cyanosis [None]
  - Abdominal injury [None]
  - Respiratory distress [None]
  - Contrast media reaction [None]
